FAERS Safety Report 7672595-6 (Version None)
Quarter: 2011Q3

REPORT INFORMATION
  Report Type: 
  Country: None (occurrence: None)
  Receive Date: 20110809
  Receipt Date: 20110805
  Transmission Date: 20111222
  Serious: Yes (Other)
  Sender: FDA-Public Use
  Company Number: AU-AMGEN-AUSSP2011039902

PATIENT
  Age: 45 Year
  Sex: Female

DRUGS (6)
  1. NEULASTA [Suspect]
     Indication: CHEMOTHERAPY
  2. CYCLOPHOSPHAMIDE [Concomitant]
  3. VINCRISTINE [Concomitant]
  4. PREDNISONE [Concomitant]
  5. DOXORUBICIN HCL [Concomitant]
  6. RITUXIMAB [Concomitant]

REACTIONS (1)
  - GENERAL SYMPTOM [None]
